FAERS Safety Report 6102342-0 (Version None)
Quarter: 2009Q1

REPORT INFORMATION
  Report Type: 
  Country: None (occurrence: None)
  Receive Date: 20090304
  Receipt Date: 20090225
  Transmission Date: 20090719
  Serious: Yes (Life-Threatening, Other)
  Sender: FDA-Public Use
  Company Number: US-BAYER-200914787GPV

PATIENT
  Age: 48 Year
  Sex: Female

DRUGS (2)
  1. MAGNEVIST [Suspect]
     Indication: NUCLEAR MAGNETIC RESONANCE IMAGING
  2. ASPIRIN [Concomitant]
     Indication: DRUG USE FOR UNKNOWN INDICATION
     Route: 065

REACTIONS (5)
  - ANAPHYLACTIC REACTION [None]
  - DEPRESSED LEVEL OF CONSCIOUSNESS [None]
  - DYSPHAGIA [None]
  - DYSPNOEA [None]
  - PRURITUS GENERALISED [None]
